FAERS Safety Report 20937240 (Version 1)
Quarter: 2022Q2

REPORT INFORMATION
  Report Type: Spontaneous
  Country: US (occurrence: US)
  Receive Date: 20220609
  Receipt Date: 20220609
  Transmission Date: 20220721
  Serious: No
  Sender: FDA-Public Use
  Company Number: US-APOTEX-2022AP004834

PATIENT
  Age: 23 Year
  Sex: Female

DRUGS (2)
  1. GEMCITABINE [Suspect]
     Active Substance: GEMCITABINE
     Indication: Osteosarcoma
     Dosage: 900 MILLIGRAM/SQ. METER ON DAYS 1 AND 8 OF 21 DAY CYCLE
     Route: 065
  2. DOCETAXEL [Suspect]
     Active Substance: DOCETAXEL
     Indication: Osteosarcoma
     Dosage: 75 MILLIGRAM/SQ. METER, Q.3W
     Route: 065

REACTIONS (2)
  - Dacryostenosis acquired [Unknown]
  - Madarosis [Unknown]
